FAERS Safety Report 4579247-X (Version None)
Quarter: 2005Q1

REPORT INFORMATION
  Report Type: 
  Country: None (occurrence: None)
  Receive Date: 20050209
  Receipt Date: 20050209
  Transmission Date: 20050727
  Serious: Yes (Other)
  Sender: FDA-Public Use
  Company Number: None

PATIENT
  Age: 56 Year
  Sex: Male

DRUGS (2)
  1. SEROQUEL [Suspect]
     Indication: BIPOLAR DISORDER
     Dosage: OVERDOSE - UNKNOWN
     Route: 065
  2. SUCCINYLCHOLINE [Suspect]
     Indication: INTUBATION
     Dosage: MG/KG ( MG)

REACTIONS (10)
  - CARDIAC ARREST [None]
  - CIRCULATORY COLLAPSE [None]
  - COMPLETED SUICIDE [None]
  - CORONARY ARTERY ATHEROSCLEROSIS [None]
  - DRUG INEFFECTIVE [None]
  - DRUG INTERACTION [None]
  - HYPERTHERMIA MALIGNANT [None]
  - INTENTIONAL MISUSE [None]
  - NEUROLEPTIC MALIGNANT SYNDROME [None]
  - VENTRICULAR TACHYCARDIA [None]
